FAERS Safety Report 13074856 (Version 1)
Quarter: 2016Q4

REPORT INFORMATION
  Report Type: Spontaneous
  Country: US (occurrence: US)
  Receive Date: 20161230
  Receipt Date: 20161230
  Transmission Date: 20170207
  Serious: No
  Sender: FDA-Public Use
  Company Number: US-PFIZER INC-2016590394

PATIENT
  Sex: Male

DRUGS (3)
  1. TETANUS TOXOID ADSORBED [Concomitant]
     Active Substance: CLOSTRIDIUM TETANI TOXOID ANTIGEN (FORMALDEHYDE INACTIVATED)
     Indication: IMMUNISATION
     Dosage: UNK
     Dates: start: 20161214
  2. PNEUMOCOCCAL VACCINE POLYVALENT NOS [Interacting]
     Active Substance: PNEUMOCOCCAL VACCINE POLYVALENT
     Dates: start: 20161214
  3. VIAGRA [Suspect]
     Active Substance: SILDENAFIL CITRATE
     Indication: ERECTILE DYSFUNCTION
     Dosage: 50 MG, UNK

REACTIONS (2)
  - Drug ineffective [Unknown]
  - Drug interaction [Unknown]
